FAERS Safety Report 5495525-4 (Version None)
Quarter: 2007Q4

REPORT INFORMATION
  Report Type: 
  Country: None (occurrence: None)
  Receive Date: 20071018
  Receipt Date: 20070102
  Transmission Date: 20080405
  Serious: Yes (Hospitalization, Other)
  Sender: FDA-Public Use
  Company Number: 2005107445

PATIENT
  Age: 29 Year
  Sex: Male

DRUGS (1)
  1. NEURONTIN [Suspect]
     Indication: MIGRAINE
     Dates: start: 20020130, end: 20020101

REACTIONS (3)
  - DRUG INEFFECTIVE [None]
  - PSYCHIATRIC SYMPTOM [None]
  - SUICIDE ATTEMPT [None]
